FAERS Safety Report 19944430 (Version 1)
Quarter: 2021Q4

REPORT INFORMATION
  Report Type: 
  Country: US (occurrence: US)
  Receive Date: 20211011
  Receipt Date: 20211011
  Transmission Date: 20220303
  Serious: No
  Sender: FDA-Public Use
  Company Number: US-C B FLEET CO INC-202105-US-001592

PATIENT
  Age: 78 Year
  Sex: Female

DRUGS (4)
  1. MONISTAT 7 7-DAY DISPOSABLE APPLICATORS [Suspect]
     Active Substance: MICONAZOLE NITRATE
     Indication: Prophylaxis
     Dosage: USED ONCE VAGINALLY
     Route: 067
     Dates: start: 20210502
  2. PREMARIN [Concomitant]
     Active Substance: ESTROGENS, CONJUGATED
  3. REPLENS [Concomitant]
     Active Substance: CARBOMER 934\GLYCERIN\METHYLPARABEN\PROPYLPARABEN\SODIUM HYDROXIDE
  4. UNSPECIFIED INGREDIENT [Concomitant]
     Active Substance: UNSPECIFIED INGREDIENT

REACTIONS (4)
  - Vulvovaginal burning sensation [Not Recovered/Not Resolved]
  - Vulvovaginal inflammation [Not Recovered/Not Resolved]
  - Application site warmth [Not Recovered/Not Resolved]
  - Off label use [None]
